FAERS Safety Report 24386613 (Version 3)
Quarter: 2024Q4

REPORT INFORMATION
  Report Type: Report from Study
  Country: US (occurrence: US)
  Receive Date: 20241002
  Receipt Date: 20241017
  Transmission Date: 20250115
  Serious: Yes (Other)
  Sender: AMGEN
  Company Number: US-AMGEN-USASP2024191373

PATIENT
  Age: 64 Year
  Sex: Male

DRUGS (3)
  1. TEPEZZA [Suspect]
     Active Substance: TEPROTUMUMAB-TRBW
     Indication: Toxic goitre
     Dosage: 1450 MILLIGRAM, Q3WK, WEEK 0
     Route: 042
     Dates: start: 20240503
  2. TEPEZZA [Suspect]
     Active Substance: TEPROTUMUMAB-TRBW
     Dosage: 1450 MILLIGRAM, Q3WK, WEEK 3
     Route: 042
     Dates: start: 2024
  3. TEPEZZA [Suspect]
     Active Substance: TEPROTUMUMAB-TRBW
     Dosage: UNK, FIFTH INFUSION
     Route: 040
     Dates: start: 20240823, end: 20240823

REACTIONS (4)
  - Deafness [Recovered/Resolved]
  - Malaise [Unknown]
  - Vertigo [Unknown]
  - Nausea [Unknown]

NARRATIVE: CASE EVENT DATE: 20240613
